FAERS Safety Report 10239467 (Version 1)
Quarter: 2014Q2

REPORT INFORMATION
  Report Type: Spontaneous
  Country: PT (occurrence: PT)
  Receive Date: 20140616
  Receipt Date: 20140616
  Transmission Date: 20141212
  Serious: Yes (Other)
  Sender: FDA-Public Use
  Company Number: PT-B.I. PHARMACEUTICALS,INC./RIDGEFIELD-2014-BI-26374PO

PATIENT
  Age: 48 Year
  Sex: Female

DRUGS (2)
  1. VIRAMUNE [Suspect]
     Indication: HIV INFECTION
     Dosage: 400 MG
     Route: 048
     Dates: start: 20140506, end: 20140522
  2. KIVEXA [Concomitant]
     Indication: HIV INFECTION
     Dosage: 1 ANZ
     Route: 048
     Dates: start: 20140506, end: 20140522

REACTIONS (2)
  - Rash generalised [Not Recovered/Not Resolved]
  - Rash [Not Recovered/Not Resolved]
